FAERS Safety Report 9360057 (Version 1)
Quarter: 2013Q2

REPORT INFORMATION
  Report Type: Spontaneous
  Country: US (occurrence: US)
  Receive Date: 20130621
  Receipt Date: 20130621
  Transmission Date: 20140414
  Serious: No
  Sender: FDA-Public Use
  Company Number: US-PFIZER INC-2013185149

PATIENT
  Sex: Male
  Weight: 92.52 kg

DRUGS (14)
  1. LYRICA [Suspect]
     Indication: CONVULSION
     Dosage: UNK
  2. CARBAMAZEPINE [Suspect]
     Indication: CONVULSION
     Dosage: 400MG IN MORNING AND BY SPLITTING 400MG IN HALF AND TAKING IT AT UNKNOWN DOSE IN EVENING
  3. TEGRETOL [Suspect]
     Indication: CONVULSION
     Dosage: UNK
  4. ASPIRIN [Concomitant]
     Dosage: 81 MG, 1X/DAY
  5. AMITRIPTYLINE [Concomitant]
     Dosage: 50 MG, 1X/DAY
  6. CITALOPRAM [Concomitant]
     Dosage: 40 MG, 2X/DAY
  7. FOLBEE [Concomitant]
     Indication: VITAMIN B COMPLEX DEFICIENCY
     Dosage: UNK, 1X/DAY
  8. FUROSEMIDE [Concomitant]
     Dosage: 40 MG, 1X/DAY
  9. LORAZEPAM [Concomitant]
     Dosage: 1 MG, 4X/DAY
  10. METOPROLOL SUCCINATE [Concomitant]
     Dosage: 25 MG, 1X/DAY
  11. PLAVIX [Concomitant]
     Dosage: 75 MG, 1X/DAY
  12. SIMVASTATIN [Concomitant]
     Indication: BLOOD CHOLESTEROL INCREASED
     Dosage: 20 MG, 1X/DAY
  13. SPIRONOLACTONE [Concomitant]
     Dosage: 25 MG, 1X/DAY
  14. VITAMIN B12 [Concomitant]
     Indication: VITAMIN B COMPLEX DEFICIENCY
     Dosage: 1 ML, EVERY OTHER WEEK

REACTIONS (2)
  - Off label use [Unknown]
  - Drug ineffective [Unknown]
